FAERS Safety Report 14534959 (Version 1)
Quarter: 2018Q1

REPORT INFORMATION
  Report Type: Spontaneous
  Country: US (occurrence: US)
  Receive Date: 20180214
  Receipt Date: 20180214
  Transmission Date: 20180509
  Serious: No
  Sender: FDA-Public Use
  Company Number: None

PATIENT
  Age: 22 Year
  Sex: Male
  Weight: 86.85 kg

DRUGS (4)
  1. VICKS DAYQUIL [Suspect]
     Active Substance: DEXTROMETHORPHAN HYDROBROMIDE\GUAIFENESIN
     Indication: NASAL CONGESTION
     Dosage: ?          QUANTITY:30 ML;?
     Route: 048
     Dates: start: 20180213, end: 20180213
  2. FLONASE [Concomitant]
     Active Substance: FLUTICASONE PROPIONATE
  3. NYQUIL NOS [Concomitant]
     Active Substance: ACETAMINOPHEN\CHLORPHENIRAMINE\DEXTROMETHORPHAN\DIPHENHYDRAMINE\DOXYLAMINE\PSEUDOEPHEDRINE
  4. VICKS DAYQUIL [Suspect]
     Active Substance: DEXTROMETHORPHAN HYDROBROMIDE\GUAIFENESIN
     Indication: OROPHARYNGEAL PAIN
     Dosage: ?          QUANTITY:30 ML;?
     Route: 048
     Dates: start: 20180213, end: 20180213

REACTIONS (2)
  - Irritability [None]
  - Anxiety [None]

NARRATIVE: CASE EVENT DATE: 20180213
